FAERS Safety Report 10628626 (Version 1)
Quarter: 2014Q4

REPORT INFORMATION
  Report Type: Spontaneous
  Country: US (occurrence: US)
  Receive Date: 20141205
  Receipt Date: 20141205
  Transmission Date: 20150529
  Serious: No
  Sender: FDA-Public Use
  Company Number: US-BRISTOL-MYERS SQUIBB COMPANY-21375878

PATIENT
  Age: 55 Year
  Sex: Male

DRUGS (5)
  1. ABACAVIR [Concomitant]
     Active Substance: ABACAVIR
  2. LOSARTAN [Concomitant]
     Active Substance: LOSARTAN
  3. PLAVIX [Concomitant]
     Active Substance: CLOPIDOGREL BISULFATE
  4. REYATAZ [Suspect]
     Active Substance: ATAZANAVIR SULFATE
  5. JANUVIA [Concomitant]
     Active Substance: SITAGLIPTIN PHOSPHATE

REACTIONS (1)
  - Gastrointestinal tube insertion [Unknown]
